FAERS Safety Report 24201771 (Version 1)
Quarter: 2024Q3

REPORT INFORMATION
  Report Type: Spontaneous
  Country: CN (occurrence: CN)
  Receive Date: 20240812
  Receipt Date: 20240812
  Transmission Date: 20241017
  Serious: Yes (Hospitalization)
  Sender: GE HEALTHCARE
  Company Number: CN-GE HEALTHCARE-2024CSU009026

PATIENT
  Age: 81 Year
  Sex: Female
  Weight: 68 kg

DRUGS (1)
  1. VISIPAQUE [Suspect]
     Active Substance: IODIXANOL
     Indication: Angiogram cerebral
     Dosage: 200 ML, TOTAL
     Route: 042
     Dates: start: 20240726, end: 20240726

REACTIONS (3)
  - Blister [Not Recovered/Not Resolved]
  - Rash erythematous [Not Recovered/Not Resolved]
  - Pustule [Not Recovered/Not Resolved]

NARRATIVE: CASE EVENT DATE: 20240728
